FAERS Safety Report 17651653 (Version 3)
Quarter: 2020Q2

REPORT INFORMATION
  Report Type: Report from Study
  Country: US (occurrence: US)
  Receive Date: 20200409
  Receipt Date: 20200529
  Transmission Date: 20200713
  Serious: No
  Sender: FDA-Public Use
  Company Number: NVSC2020US093744

PATIENT
  Sex: Female

DRUGS (1)
  1. BEOVU [Suspect]
     Active Substance: BROLUCIZUMAB-DBLL
     Indication: NEOVASCULAR AGE-RELATED MACULAR DEGENERATION
     Dosage: UNK
     Route: 047
     Dates: end: 20200221

REACTIONS (5)
  - Vision blurred [Unknown]
  - Chronic sinusitis [Unknown]
  - Hypersensitivity [Unknown]
  - Visual impairment [Unknown]
  - Eye inflammation [Unknown]
